FAERS Safety Report 18990458 (Version 1)
Quarter: 2021Q1

REPORT INFORMATION
  Report Type: Spontaneous
  Country: US (occurrence: US)
  Receive Date: 20210310
  Receipt Date: 20210310
  Transmission Date: 20210420
  Serious: No
  Sender: FDA-Public Use
  Company Number: US-AMGEN-USASP2021036406

PATIENT
  Age: 62 Year
  Sex: Female

DRUGS (2)
  1. PREDNISONE. [Concomitant]
     Active Substance: PREDNISONE
     Dosage: 1 MILLIGRAM
  2. REPATHA [Suspect]
     Active Substance: EVOLOCUMAB
     Indication: PRODUCT USED FOR UNKNOWN INDICATION
     Dosage: UNK
     Route: 065
     Dates: start: 20210228

REACTIONS (5)
  - Tinnitus [Unknown]
  - Oropharyngeal discomfort [Recovering/Resolving]
  - Rhinorrhoea [Recovering/Resolving]
  - Hypoaesthesia [Unknown]
  - Ear discomfort [Unknown]

NARRATIVE: CASE EVENT DATE: 2021
